FAERS Safety Report 7291010-8 (Version None)
Quarter: 2011Q1

REPORT INFORMATION
  Report Type: 
  Country: None (occurrence: None)
  Receive Date: 20110214
  Receipt Date: 20110202
  Transmission Date: 20110831
  Serious: Yes (Other)
  Sender: FDA-Public Use
  Company Number: PHHY2011US08791

PATIENT
  Age: 88 Year
  Sex: Female

DRUGS (3)
  1. METOPROLOL [Interacting]
     Dosage: 200 MG, DAILY
  2. ASPIRIN [Concomitant]
  3. FLECAINIDE [Suspect]
     Indication: ATRIAL FIBRILLATION
     Dosage: 100 MG, BID

REACTIONS (11)
  - HYPERKALAEMIA [None]
  - DEVICE CAPTURING ISSUE [None]
  - RENAL FAILURE ACUTE [None]
  - HYPOTENSION [None]
  - CARDIOACTIVE DRUG LEVEL ABOVE THERAPEUTIC [None]
  - TOXICITY TO VARIOUS AGENTS [None]
  - ELECTROCARDIOGRAM PACEMAKER SPIKE [None]
  - ELECTROCARDIOGRAM QRS COMPLEX ABNORMAL [None]
  - DEHYDRATION [None]
  - SYNCOPE [None]
  - ELECTROCARDIOGRAM T WAVE ABNORMAL [None]
